FAERS Safety Report 14392402 (Version 3)
Quarter: 2018Q1

REPORT INFORMATION
  Report Type: Spontaneous
  Country: JP (occurrence: JP)
  Receive Date: 20180116
  Receipt Date: 20180308
  Transmission Date: 20180509
  Serious: Yes (Other)
  Sender: FDA-Public Use
  Company Number: JP-PFIZER INC-2018015930

PATIENT
  Age: 3 Year
  Sex: Male
  Weight: 17 kg

DRUGS (7)
  1. GENOTROPIN [Suspect]
     Active Substance: SOMATROPIN
     Dosage: HALF-DOSE OF PREVIOUS DOSE (0.3 MG, 1X/DAY)
  2. ALESION [Suspect]
     Active Substance: EPINASTINE HYDROCHLORIDE
     Indication: NASOPHARYNGITIS
     Dosage: 7 MG, 1X/DAY
     Route: 048
     Dates: start: 20171101, end: 20171226
  3. MUCODYNE [Suspect]
     Active Substance: CARBOCYSTEINE
     Indication: NASOPHARYNGITIS
     Dosage: 450 MG, 3X/DAY
     Route: 048
     Dates: start: 20171220, end: 20171226
  4. ASVERIN (TIPEPIDINE HIBENZATE) [Suspect]
     Active Substance: TIPEPIDINE HIBENZATE
     Indication: NASOPHARYNGITIS
     Dosage: 45 MG, 3X/DAY
     Route: 048
     Dates: start: 20171220, end: 20171226
  5. GENOTROPIN [Suspect]
     Active Substance: SOMATROPIN
     Dosage: 0.6 MG, 1X/DAY
     Route: 058
     Dates: start: 20171125, end: 20171226
  6. ONON [Suspect]
     Active Substance: PRANLUKAST
     Indication: NASOPHARYNGITIS
     Dosage: 105 MG, 2X/DAY
     Route: 048
     Dates: start: 20171101, end: 20171226
  7. FLOMOX /01418603/ [Suspect]
     Active Substance: CEFCAPENE PIVOXIL HYDROCHLORIDE HYDRATE
     Indication: NASOPHARYNGITIS
     Dosage: 170 MG, 3X/DAY
     Route: 048
     Dates: start: 20171220, end: 20171226

REACTIONS (2)
  - Hepatic enzyme increased [Recovered/Resolved]
  - Hepatic function abnormal [Unknown]

NARRATIVE: CASE EVENT DATE: 20171129
